FAERS Safety Report 23957866 (Version 1)
Quarter: 2024Q2

REPORT INFORMATION
  Report Type: Spontaneous
  Country: US (occurrence: None)
  Receive Date: 20240608
  Receipt Date: 20240608
  Transmission Date: 20240716
  Serious: Yes (Hospitalization, Other)
  Sender: FDA-Public Use
  Company Number: None

PATIENT
  Age: 31 Year
  Sex: Female
  Weight: 81 kg

DRUGS (1)
  1. ZEPBOUND [Suspect]
     Active Substance: TIRZEPATIDE
     Indication: Weight decreased
     Dosage: OTHER QUANTITY : 1 INJECTION(S)?OTHER FREQUENCY : ONCE A WEEK INJECT?
     Route: 030
     Dates: start: 20240603, end: 20240603

REACTIONS (10)
  - Injection related reaction [None]
  - Chest pain [None]
  - Chest pain [None]
  - Nausea [None]
  - Vomiting [None]
  - Tachycardia [None]
  - Abdominal pain [None]
  - Dizziness [None]
  - Nervousness [None]
  - Constipation [None]

NARRATIVE: CASE EVENT DATE: 20240603
